FAERS Safety Report 16367347 (Version 2)
Quarter: 2019Q3

REPORT INFORMATION
  Report Type: Spontaneous
  Country: JP (occurrence: JP)
  Receive Date: 20190529
  Receipt Date: 20190709
  Transmission Date: 20191004
  Serious: Yes (Death, Hospitalization, Other)
  Sender: FDA-Public Use
  Company Number: JP-PFIZER INC-2018283713

PATIENT
  Age: 75 Year
  Sex: Male

DRUGS (1)
  1. VYNDAQEL [Suspect]
     Active Substance: TAFAMIDIS MEGLUMINE
     Indication: HEREDITARY NEUROPATHIC AMYLOIDOSIS
     Dosage: 20 MG, DAILY
     Route: 048
     Dates: end: 201812

REACTIONS (10)
  - General physical health deterioration [Unknown]
  - Renal failure [Unknown]
  - Respiratory failure [Fatal]
  - Hypoproteinaemia [Unknown]
  - Syncope [Unknown]
  - Gastrointestinal motility disorder [Unknown]
  - Diarrhoea [Unknown]
  - Muscular weakness [Unknown]
  - Dysphagia [Unknown]
  - Cardiac failure [Unknown]

NARRATIVE: CASE EVENT DATE: 201807
